FAERS Safety Report 6084551-2 (Version None)
Quarter: 2009Q1

REPORT INFORMATION
  Report Type: 
  Country: None (occurrence: None)
  Receive Date: 20090209
  Receipt Date: 20080205
  Transmission Date: 20090719
  Serious: Yes (Other)
  Sender: FDA-Public Use
  Company Number: US-JNJFOC-20070903891

PATIENT
  Sex: Female

DRUGS (1)
  1. SUDAFED 24 HOUR [Suspect]
     Indication: ALLERGIC RESPIRATORY DISEASE
     Dosage: ORAL
     Route: 048
     Dates: start: 20070914, end: 20070914

REACTIONS (1)
  - OVERDOSE [None]
